FAERS Safety Report 8823287 (Version 9)
Quarter: 2014Q1

REPORT INFORMATION
  Report Type: Report from Study
  Country: CA (occurrence: CA)
  Receive Date: 20121003
  Receipt Date: 20140205
  Transmission Date: 20141002
  Serious: Yes (Other)
  Sender: FDA-Public Use
  Company Number: CA-ROCHE-1106925

PATIENT
  Age: 62 Year
  Sex: Female
  Weight: 100.7 kg

DRUGS (13)
  1. ACTEMRA [Suspect]
     Indication: RHEUMATOID ARTHRITIS
     Route: 042
     Dates: start: 20120426, end: 20120919
  2. ACTEMRA [Suspect]
     Route: 042
     Dates: start: 20120421
  3. ARAVA [Concomitant]
  4. PLAQUENIL [Concomitant]
  5. CELEBREX [Concomitant]
  6. ACTONEL [Concomitant]
  7. NORTRIPTYLINE [Concomitant]
  8. TECTA [Concomitant]
  9. SYNTHROID [Concomitant]
  10. VITAMIN B12 [Concomitant]
     Route: 065
  11. VITAMIN C [Concomitant]
  12. OXYCOCET [Concomitant]
     Route: 065
  13. METHOTREXATE [Concomitant]

REACTIONS (14)
  - Ulcer [Not Recovered/Not Resolved]
  - Joint abscess [Recovered/Resolved]
  - Arthropathy [Not Recovered/Not Resolved]
  - Arthralgia [Not Recovered/Not Resolved]
  - Joint swelling [Unknown]
  - Ill-defined disorder [Unknown]
  - Fatigue [Unknown]
  - Erythema [Not Recovered/Not Resolved]
  - Pain [Unknown]
  - Local swelling [Not Recovered/Not Resolved]
  - Erythema [Unknown]
  - Rheumatoid arthritis [Not Recovered/Not Resolved]
  - Cellulitis [Not Recovered/Not Resolved]
  - Drug ineffective [Unknown]
